FAERS Safety Report 7765994-5 (Version None)
Quarter: 2011Q3

REPORT INFORMATION
  Report Type: 
  Country: None (occurrence: None)
  Receive Date: 20110921
  Receipt Date: 20110325
  Transmission Date: 20111222
  Serious: No
  Sender: FDA-Public Use
  Company Number: US-BAYER-2011-027384

PATIENT
  Sex: Male

DRUGS (1)
  1. ALEVE (CAPLET) [Suspect]
     Dosage: UNK UNK, ONCE
     Route: 048
     Dates: start: 20110324, end: 20110324

REACTIONS (1)
  - THERAPEUTIC RESPONSE UNEXPECTED [None]
